FAERS Safety Report 25930158 (Version 1)
Quarter: 2025Q4

REPORT INFORMATION
  Report Type: Spontaneous
  Country: EU (occurrence: EU)
  Receive Date: 20251016
  Receipt Date: 20251016
  Transmission Date: 20260117
  Serious: Yes (Hospitalization, Other)
  Sender: INSUD PHARMA
  Company Number: EU-EXELTIS PHARMACEUTICAL HOLDING, S.L.-2510DE08248

PATIENT
  Age: 26 Year
  Sex: Female
  Weight: 55 kg

DRUGS (1)
  1. ETHINYL ESTRADIOL\ETONOGESTREL [Suspect]
     Active Substance: ETHINYL ESTRADIOL\ETONOGESTREL
     Indication: Contraception
     Dosage: 3 WEEKS OF USE, 1 WEEK BREAK
     Route: 067

REACTIONS (3)
  - Myocarditis [Recovered/Resolved]
  - Anxiety [Recovered/Resolved]
  - Panic disorder [Recovered/Resolved]

NARRATIVE: CASE EVENT DATE: 20241101
